FAERS Safety Report 8541566-X (Version None)
Quarter: 2012Q3

REPORT INFORMATION
  Report Type: 
  Country: None (occurrence: None)
  Receive Date: 20120726
  Receipt Date: 20120618
  Transmission Date: 20120928
  Serious: No
  Sender: FDA-Public Use
  Company Number: US-MUTUAL PHARMACEUTICAL COMPANY, INC.-CLCY20120097

PATIENT
  Sex: Male
  Weight: 68.1 kg

DRUGS (7)
  1. SIMVASTATIN [Suspect]
     Indication: BLOOD CHOLESTEROL INCREASED
     Route: 065
  2. ALLOPURINOL [Concomitant]
     Indication: PRODUCT USED FOR UNKNOWN INDICATION
     Route: 065
     Dates: start: 20120101
  3. COLCRYS [Suspect]
     Indication: GOUT
     Route: 048
     Dates: start: 20120501, end: 20120618
  4. ATENOLOL [Concomitant]
     Indication: PRODUCT USED FOR UNKNOWN INDICATION
     Route: 065
  5. OTHER UNSPECIFIED MEDICATIONS [Concomitant]
     Indication: PRODUCT USED FOR UNKNOWN INDICATION
  6. ASPIRIN [Concomitant]
     Indication: CARDIOVASCULAR EVENT PROPHYLAXIS
     Route: 065
  7. NORVASC [Concomitant]
     Indication: HYPERTENSION
     Route: 065
     Dates: start: 20120101

REACTIONS (3)
  - BLOOD PRESSURE SYSTOLIC INCREASED [None]
  - PAIN [None]
  - DRUG INTERACTION [None]
